FAERS Safety Report 10387462 (Version 2)
Quarter: 2014Q3

REPORT INFORMATION
  Report Type: Spontaneous
  Country: FR (occurrence: FR)
  Receive Date: 20140815
  Receipt Date: 20140819
  Transmission Date: 20150326
  Serious: Yes (Hospitalization)
  Sender: FDA-Public Use
  Company Number: FR-PFIZER INC-2014222342

PATIENT
  Age: 65 Year
  Sex: Male

DRUGS (7)
  1. RIFADINE [Suspect]
     Active Substance: RIFAMPIN
     Dosage: 600 MG, 2X/DAY
     Route: 048
     Dates: start: 20140429, end: 20140513
  2. ACTISKENAN [Concomitant]
     Active Substance: MORPHINE SULFATE
     Dosage: UNK
  3. ORBENINE [Concomitant]
     Active Substance: CLOXACILLIN SODIUM
     Dosage: UNK
     Route: 048
  4. ACUPAN [Concomitant]
     Active Substance: NEFOPAM HYDROCHLORIDE
     Dosage: UNK
     Dates: end: 20140501
  5. LOVENOX [Concomitant]
     Active Substance: ENOXAPARIN SODIUM
     Dosage: UNK
  6. PROFENID [Concomitant]
     Active Substance: KETOPROFEN
     Dosage: UNK
     Dates: end: 20140501
  7. TAHOR [Suspect]
     Active Substance: ATORVASTATIN CALCIUM
     Dosage: 20 MG, DAILY
     Route: 048
     Dates: start: 2012, end: 20140513

REACTIONS (2)
  - Device related infection [Unknown]
  - Hepatocellular injury [Recovering/Resolving]

NARRATIVE: CASE EVENT DATE: 20140505
